FAERS Safety Report 6264121-3 (Version None)
Quarter: 2009Q3

REPORT INFORMATION
  Report Type: 
  Country: None (occurrence: None)
  Receive Date: 20090710
  Receipt Date: 20090703
  Transmission Date: 20100115
  Serious: Yes (Other)
  Sender: FDA-Public Use
  Company Number: US-PFIZER INC-2009237009

PATIENT
  Sex: Male
  Weight: 77 kg

DRUGS (4)
  1. LIPITOR [Suspect]
  2. LIPITOR [Suspect]
     Dosage: 40 MG, 1X/DAY
  3. ACETYLSALICYLIC ACID [Concomitant]
     Dosage: UNK
  4. ATENOLOL [Concomitant]
     Dosage: UNK

REACTIONS (9)
  - ARTHRALGIA [None]
  - CONSTIPATION [None]
  - DIARRHOEA [None]
  - DRUG INEFFECTIVE [None]
  - FATIGUE [None]
  - LETHARGY [None]
  - MYALGIA [None]
  - SLEEP DISORDER [None]
  - VASCULAR GRAFT [None]
